FAERS Safety Report 7001569-3 (Version None)
Quarter: 2010Q3

REPORT INFORMATION
  Report Type: 
  Country: None (occurrence: None)
  Receive Date: 20100920
  Receipt Date: 20100914
  Transmission Date: 20110219
  Serious: Yes (Death)
  Sender: FDA-Public Use
  Company Number: US-CELGENEUS-163-22393-10091349

PATIENT

DRUGS (1)
  1. ISTODAX [Suspect]
     Indication: T-CELL LYMPHOMA
     Dosage: 4-HR INFUSION
     Route: 065

REACTIONS (5)
  - DEATH [None]
  - FATIGUE [None]
  - GRANULOCYTE COUNT DECREASED [None]
  - NAUSEA [None]
  - PLATELET COUNT DECREASED [None]
